FAERS Safety Report 6987090-7 (Version None)
Quarter: 2010Q3

REPORT INFORMATION
  Report Type: 
  Country: None (occurrence: None)
  Receive Date: 20100916
  Receipt Date: 20100907
  Transmission Date: 20110219
  Serious: Yes (Other)
  Sender: FDA-Public Use
  Company Number: US-BAYER-201033060NA

PATIENT
  Age: 28 Year
  Sex: Female

DRUGS (1)
  1. MIRENA [Suspect]
     Indication: CONTRACEPTION
     Dosage: FREQUENCY: CONTINUOUS. IN MAY-2010, MIRENA WAS PUSHED BACK UP BY HISTEROSCOPY
     Route: 015
     Dates: start: 20090210

REACTIONS (6)
  - ABDOMINAL PAIN [None]
  - ANAL HAEMORRHAGE [None]
  - ANOGENITAL DYSPLASIA [None]
  - CONSTIPATION [None]
  - DEVICE DISLOCATION [None]
  - VAGINITIS BACTERIAL [None]
